FAERS Safety Report 8313934-2 (Version None)
Quarter: 2012Q2

REPORT INFORMATION
  Report Type: 
  Country: None (occurrence: None)
  Receive Date: 20120426
  Receipt Date: 20120426
  Transmission Date: 20120825
  Serious: Yes (Life-Threatening, Hospitalization)
  Sender: FDA-Public Use
  Company Number: None

PATIENT
  Age: 48 Year
  Sex: Female
  Weight: 76.203 kg

DRUGS (2)
  1. LOESTRIN 24 FE [Concomitant]
  2. LOESTRIN 24 FE [Suspect]
     Indication: CONTRACEPTION
     Dosage: 1 TABLET
     Route: 048
     Dates: start: 20120201, end: 20120418

REACTIONS (2)
  - IMPAIRED WORK ABILITY [None]
  - PULMONARY EMBOLISM [None]
